FAERS Safety Report 9137311 (Version 1)
Quarter: 2013Q1

REPORT INFORMATION
  Report Type: Spontaneous
  Country: US (occurrence: US)
  Receive Date: 20130219
  Receipt Date: 20130219
  Transmission Date: 20140127
  Serious: No
  Sender: FDA-Public Use
  Company Number: US-BRISTOL-MYERS SQUIBB COMPANY-16500381

PATIENT
  Sex: 0

DRUGS (2)
  1. ORENCIA [Suspect]
     Dosage: TWENTIETH DOSE
     Route: 042
     Dates: start: 20100624
  2. METHOTREXATE [Suspect]
     Dosage: 1DF=3 TABLETS A WEEK
     Dates: start: 20100624

REACTIONS (1)
  - Psoriasis [Recovering/Resolving]
